FAERS Safety Report 9469601 (Version 3)
Quarter: 2013Q4

REPORT INFORMATION
  Report Type: Report from Study
  Country: US (occurrence: US)
  Receive Date: 20130822
  Receipt Date: 20131115
  Transmission Date: 20140711
  Serious: Yes (Hospitalization)
  Sender: FDA-Public Use
  Company Number: US-BRISTOL-MYERS SQUIBB COMPANY-19202746

PATIENT
  Age: 72 Year
  Sex: Male
  Weight: 113.38 kg

DRUGS (24)
  1. BLINDED: BYDUREON [Suspect]
     Indication: TYPE 2 DIABETES MELLITUS
     Dates: start: 20120820
  2. BLINDED: PLACEBO [Suspect]
     Indication: TYPE 2 DIABETES MELLITUS
     Dates: start: 20120820
  3. WARFARIN SODIUM [Suspect]
     Indication: CORONARY ARTERY DISEASE
     Dates: start: 20130111, end: 20130318
  4. WARFARIN SODIUM [Suspect]
     Indication: ATRIAL FIBRILLATION
     Dates: start: 20130111, end: 20130318
  5. CLOPIDOGREL BISULFATE [Concomitant]
     Indication: CORONARY ARTERY DISEASE
     Route: 048
     Dates: start: 20121116
  6. ALBUTEROL [Concomitant]
     Indication: CHRONIC OBSTRUCTIVE PULMONARY DISEASE
     Dosage: 90 MCG INHALE 2 PUFFS QID PRN
     Dates: start: 20121129
  7. ASPIRIN [Concomitant]
     Indication: CORONARY ARTERY DISEASE
     Route: 048
     Dates: start: 20121116
  8. BUDESONIDE [Concomitant]
     Indication: CHRONIC OBSTRUCTIVE PULMONARY DISEASE
     Dosage: 16014.5MCG INHALE 2 PUFFS
     Dates: start: 20121130
  9. FUROSEMIDE [Concomitant]
     Indication: CORONARY ARTERY DISEASE
     Route: 048
     Dates: start: 20121228
  10. ISOSORBIDE [Concomitant]
     Indication: ANGINA PECTORIS
     Route: 048
     Dates: start: 20130104
  11. LISINOPRIL [Concomitant]
     Indication: CORONARY ARTERY DISEASE
     Route: 048
     Dates: start: 20121228
  12. NICOTINE [Concomitant]
     Indication: TOBACCO USER
     Dates: start: 20121015
  13. OMEPRAZOLE [Concomitant]
     Indication: GASTROOESOPHAGEAL REFLUX DISEASE
     Dates: start: 20130214
  14. POTASSIUM CHLORIDE [Concomitant]
     Indication: MINERAL SUPPLEMENTATION
     Dates: start: 20130215
  15. PRAVASTATIN SODIUM [Concomitant]
     Indication: HYPERCHOLESTEROLAEMIA
     Dates: start: 20130215
  16. SALSALATE [Concomitant]
     Indication: PAIN
     Dosage: 75 MG TID)
     Route: 048
     Dates: start: 20130218
  17. GLIPIZIDE [Concomitant]
     Indication: HYPERGLYCAEMIA
     Route: 048
     Dates: start: 201302
  18. AMLODIPINE [Concomitant]
     Indication: CORONARY ARTERY DISEASE
     Route: 048
     Dates: start: 20110712
  19. CITALOPRAM HYDROBROMIDE [Concomitant]
     Indication: ANXIETY
     Route: 048
     Dates: start: 20110712
  20. GEMFIBROZIL [Concomitant]
     Indication: LIPIDS INCREASED
     Route: 048
     Dates: start: 20110808
  21. METOPROLOL [Concomitant]
     Indication: HYPERTENSION
     Route: 048
     Dates: start: 20110712
  22. SLO-NIACIN [Concomitant]
     Indication: HYPERLIPIDAEMIA
     Route: 048
     Dates: start: 20110804
  23. OMEGA-3 [Concomitant]
     Indication: HYPERLIPIDAEMIA
     Dates: start: 20111216
  24. NITROSTAT [Concomitant]
     Indication: ANGINA PECTORIS
     Dates: start: 20110804

REACTIONS (1)
  - Haemorrhagic arteriovenous malformation [Recovered/Resolved]
